FAERS Safety Report 5475216-6 (Version None)
Quarter: 2007Q3

REPORT INFORMATION
  Report Type: 
  Country: None (occurrence: None)
  Receive Date: 20070928
  Receipt Date: 20070914
  Transmission Date: 20080115
  Serious: Yes (Other)
  Sender: FDA-Public Use
  Company Number: 237851K07USA

PATIENT
  Age: 31 Year
  Sex: Female

DRUGS (2)
  1. REBIF [Suspect]
     Indication: MULTIPLE SCLEROSIS
     Dosage: 44 MCG, 3 IN 1 WEEKS, SUBCUTANEOUS
     Route: 058
     Dates: start: 20070313
  2. ALEVE [Concomitant]

REACTIONS (6)
  - DIPLOPIA [None]
  - HYPOAESTHESIA [None]
  - LHERMITTE'S SIGN [None]
  - MULTIPLE SCLEROSIS RELAPSE [None]
  - OCULAR HYPERAEMIA [None]
  - XEROPHTHALMIA [None]
